FAERS Safety Report 15043754 (Version 2)
Quarter: 2018Q2

REPORT INFORMATION
  Report Type: Report from Study
  Country: FR (occurrence: FR)
  Receive Date: 20180621
  Receipt Date: 20180627
  Transmission Date: 20180711
  Serious: Yes (Death, Other)
  Sender: FDA-Public Use
  Company Number: FR-JAZZ-2018-FR-009603

PATIENT

DRUGS (9)
  1. LANTUS [Concomitant]
     Active Substance: INSULIN GLARGINE
     Indication: DIABETES MELLITUS
     Dosage: 15 IU, QD
     Dates: start: 20170405, end: 20170619
  2. ENTOCORT [Concomitant]
     Active Substance: BUDESONIDE
     Indication: GRAFT VERSUS HOST DISEASE
     Dosage: 9MG, QD
     Route: 048
     Dates: start: 20170301, end: 20170619
  3. OXYCONTIN [Concomitant]
     Active Substance: OXYCODONE HYDROCHLORIDE
     Indication: PAIN
     Dosage: 40 MG, QD
     Route: 048
     Dates: start: 20170517, end: 20170619
  4. DEFITELIO [Suspect]
     Active Substance: DEFIBROTIDE SODIUM
     Indication: VENOOCCLUSIVE DISEASE
     Dosage: 26 MG/KG, QD
     Route: 042
     Dates: start: 20170118
  5. ZELITREX [Concomitant]
     Active Substance: VALACYCLOVIR HYDROCHLORIDE
     Indication: PROPHYLAXIS
     Dosage: 1 G, QD
     Route: 048
     Dates: start: 20170119, end: 20170619
  6. AMLOR [Concomitant]
     Active Substance: AMLODIPINE BESYLATE
     Indication: HYPERTENSION
     Dosage: 5 MG, QD
     Route: 048
     Dates: start: 2017, end: 20170619
  7. DELURSAN [Concomitant]
     Active Substance: URSODIOL
     Indication: PROPHYLAXIS
     Dosage: UNK
     Route: 048
     Dates: start: 20170112, end: 20170619
  8. NEORAL [Concomitant]
     Active Substance: CYCLOSPORINE
     Indication: GRAFT VERSUS HOST DISEASE
     Dosage: 870 MG, QD
     Route: 048
     Dates: start: 20170119, end: 20170619
  9. DEFITELIO [Suspect]
     Active Substance: DEFIBROTIDE SODIUM
     Indication: PROPHYLAXIS
     Dosage: 26 MG/KG, QD
     Route: 042
     Dates: start: 20170112, end: 20170213

REACTIONS (3)
  - Cystitis haemorrhagic [Recovered/Resolved]
  - Hepatic failure [Fatal]
  - Myelofibrosis [Fatal]

NARRATIVE: CASE EVENT DATE: 20170524
